FAERS Safety Report 12359180 (Version 1)
Quarter: 2016Q2

REPORT INFORMATION
  Report Type: Spontaneous
  Country: US (occurrence: None)
  Receive Date: 20160511
  Receipt Date: 20160511
  Transmission Date: 20160815
  Serious: No
  Sender: FDA-Public Use
  Company Number: None

PATIENT
  Sex: Male

DRUGS (1)
  1. BALSALAZIDE [Suspect]
     Active Substance: BALSALAZIDE

REACTIONS (4)
  - Drug ineffective [None]
  - Diarrhoea [None]
  - Infection [None]
  - Diarrhoea haemorrhagic [None]
